FAERS Safety Report 21611537 (Version 2)
Quarter: 2024Q2

REPORT INFORMATION
  Report Type: Report from Study
  Country: US (occurrence: US)
  Receive Date: 20221117
  Receipt Date: 20240617
  Transmission Date: 20240716
  Serious: Yes (Hospitalization, Other)
  Sender: FDA-Public Use
  Company Number: US-ABBVIE-4202565

PATIENT
  Sex: Female

DRUGS (2)
  1. HUMIRA [Suspect]
     Active Substance: ADALIMUMAB
     Indication: Psoriasis
     Dosage: STRENGTH: 40 MG?CITRATE FREE
     Route: 058
  2. ASPIRIN [Suspect]
     Active Substance: ASPIRIN
     Indication: Headache
     Route: 065

REACTIONS (10)
  - Carotid artery occlusion [Unknown]
  - Cerebrovascular accident [Unknown]
  - Gastric perforation [Unknown]
  - Headache [Unknown]
  - Complication associated with device [Unknown]
  - Musculoskeletal disorder [Unknown]
  - Unevaluable event [Unknown]
  - Thrombosis [Unknown]
  - Visual impairment [Unknown]
  - Gastric haemorrhage [Unknown]
